FAERS Safety Report 4519763-X (Version None)
Quarter: 2004Q4

REPORT INFORMATION
  Report Type: 
  Country: None (occurrence: None)
  Receive Date: 20041203
  Receipt Date: 20041203
  Transmission Date: 20050328
  Serious: Yes (Other)
  Sender: FDA-Public Use
  Company Number: None

PATIENT
  Sex: Female
  Weight: 95.2554 kg

DRUGS (1)
  1. LEVOTHYROXINE   150 MCG   MYLAN [Suspect]
     Indication: HYPOTHYROIDISM
     Dosage: 150 MCG  ONCE DAILY  ORAL
     Route: 048
     Dates: start: 20041119, end: 20041201

REACTIONS (2)
  - HEADACHE [None]
  - PHARMACEUTICAL PRODUCT COMPLAINT [None]
